FAERS Safety Report 8409567 (Version 2)
Quarter: 2013Q2

REPORT INFORMATION
  Report Type: Spontaneous
  Country: US (occurrence: None)
  Receive Date: 20111227
  Receipt Date: 20120426
  Transmission Date: 20140414
  Serious: Yes (Other)
  Sender: FDA-Public Use
  Company Number: PHEH2011US03198

PATIENT
  Age: 50 Year
  Sex: Male
  Weight: 65.3 kg

DRUGS (7)
  1. GILENYA [Suspect]
     Dosage: 0.5 MG/ 1 CAP EVERY DAY, ORAL
     Route: 048
  2. ZOLOFT [Concomitant]
  3. LISINOPRIL [Concomitant]
  4. SYNTHROID [Concomitant]
  5. GABAPENTIN [Concomitant]
  6. TRAZODONE HYDROCHLORIDE [Concomitant]
  7. VITAMIN B12 [Concomitant]

REACTIONS (4)
  - Nystagmus [None]
  - VISUAL IMPAIRMENT [None]
  - Balance disorder [None]
  - Dizziness [None]
